FAERS Safety Report 20483279 (Version 1)
Quarter: 2022Q1

REPORT INFORMATION
  Report Type: Other
  Country: US (occurrence: None)
  Receive Date: 20220217
  Receipt Date: 20220217
  Transmission Date: 20220423
  Serious: Yes (Hospitalization, Other)
  Sender: FDA-Public Use
  Company Number: US-ROCHE-3019978

PATIENT
  Age: 57 Year
  Sex: Female
  Weight: 113.50 kg

DRUGS (26)
  1. OCREVUS [Suspect]
     Active Substance: OCRELIZUMAB
     Indication: Relapsing-remitting multiple sclerosis
     Dosage: (2 VIALS); DOT: 07/DEC/2020, 22/DEC/2020, 16/JUN/2021, 22/DEC/2021
     Route: 042
     Dates: start: 202012
  2. LAMICTAL [Concomitant]
     Active Substance: LAMOTRIGINE
  3. DETROL LA [Concomitant]
     Active Substance: TOLTERODINE TARTRATE
  4. LYRICA [Concomitant]
     Active Substance: PREGABALIN
  5. MODAFINIL [Concomitant]
     Active Substance: MODAFINIL
  6. IMITREX [Concomitant]
     Active Substance: SUMATRIPTAN SUCCINATE
  7. EMGALITY [Concomitant]
     Active Substance: GALCANEZUMAB-GNLM
  8. ABILIFY [Concomitant]
     Active Substance: ARIPIPRAZOLE
  9. PROTONIX [Concomitant]
     Active Substance: PANTOPRAZOLE SODIUM
  10. SYNTHROID [Concomitant]
     Active Substance: LEVOTHYROXINE SODIUM
  11. REQUIP [Concomitant]
     Active Substance: ROPINIROLE HYDROCHLORIDE
  12. CYTOTEC [Concomitant]
     Active Substance: MISOPROSTOL
  13. ASPIRIN [Concomitant]
     Active Substance: ASPIRIN
  14. CALCIUM [Concomitant]
     Active Substance: CALCIUM
  15. COENZYME Q10 [Concomitant]
     Active Substance: DIETARY SUPPLEMENT\UBIDECARENONE
  16. CYANOCOBALAMIN\DEXPANTHENOL\NIACINAMIDE\PYRIDOXINE HYDROCHLORIDE\RIBOF [Concomitant]
     Active Substance: CYANOCOBALAMIN\DEXPANTHENOL\NIACINAMIDE\PYRIDOXINE HYDROCHLORIDE\RIBOFLAVIN 5^-PHOSPHATE SODIUM\THIA
  17. CELEBREX [Concomitant]
     Active Substance: CELECOXIB
  18. FIBERCON [Concomitant]
     Active Substance: CALCIUM POLYCARBOPHIL
  19. GLUCOSAMINE [Concomitant]
     Active Substance: GLUCOSAMINE
  20. MEGARED SUPERIOR OMEGA 3 KRILL OIL [Concomitant]
  21. BIOTIN [Concomitant]
     Active Substance: BIOTIN
  22. DYAZIDE [Concomitant]
     Active Substance: HYDROCHLOROTHIAZIDE\TRIAMTERENE
  23. METOPROLOLTARTRAT [Concomitant]
  24. PERCOCET [Concomitant]
     Active Substance: ACETAMINOPHEN\OXYCODONE HYDROCHLORIDE
  25. NUCYNTA ER [Concomitant]
     Active Substance: TAPENTADOL HYDROCHLORIDE
  26. CYMBALTA [Concomitant]
     Active Substance: DULOXETINE HYDROCHLORIDE

REACTIONS (2)
  - Multiple sclerosis [Not Recovered/Not Resolved]
  - Osteomyelitis [Not Recovered/Not Resolved]

NARRATIVE: CASE EVENT DATE: 20211116
